FAERS Safety Report 7810880-5 (Version None)
Quarter: 2011Q4

REPORT INFORMATION
  Report Type: 
  Country: None (occurrence: None)
  Receive Date: 20111013
  Receipt Date: 20111003
  Transmission Date: 20120403
  Serious: Yes (Other)
  Sender: FDA-Public Use
  Company Number: US-JNJFOC-20111002024

PATIENT
  Sex: Male
  Weight: 83.92 kg

DRUGS (3)
  1. AVODART [Concomitant]
     Indication: PROSTATE CANCER
     Route: 048
     Dates: start: 20050101
  2. ZYTIGA [Suspect]
     Indication: PROSTATE CANCER METASTATIC
     Route: 048
     Dates: start: 20110702
  3. KEPPRA [Concomitant]
     Indication: CONVULSION PROPHYLAXIS
     Route: 048
     Dates: start: 20100101

REACTIONS (4)
  - BLOOD ALKALINE PHOSPHATASE INCREASED [None]
  - MYALGIA [None]
  - PROSTATE CANCER METASTATIC [None]
  - PROSTATIC SPECIFIC ANTIGEN INCREASED [None]
